FAERS Safety Report 8416252-7 (Version None)
Quarter: 2012Q2

REPORT INFORMATION
  Report Type: 
  Country: None (occurrence: None)
  Receive Date: 20120530
  Receipt Date: 20120515
  Transmission Date: 20120825
  Serious: Yes (Other)
  Sender: FDA-Public Use
  Company Number: DSJ-2012-04754

PATIENT
  Age: 79 Year
  Sex: Female

DRUGS (6)
  1. BENICAR HCT [Suspect]
     Indication: HYPERTENSION
     Dosage: 20/12.5 MG (1 IN 1 D), PER ORAL
     Route: 048
  2. ACETYLSALICYLIC ACID SRT [Concomitant]
  3. ALPRAZOLAM [Concomitant]
  4. ATENOLOL [Concomitant]
  5. SIMVASTATIN [Concomitant]
  6. GLUCOSAMINE/CHONDROITIN/METHYLSULFONYLMETHANE [Concomitant]

REACTIONS (7)
  - VASCULAR RUPTURE [None]
  - BODY FAT DISORDER [None]
  - CAROTID ARTERIOSCLEROSIS [None]
  - ABDOMINAL PAIN UPPER [None]
  - VENOUS INJURY [None]
  - VOMITING [None]
  - OBESITY [None]
